FAERS Safety Report 15936218 (Version 1)
Quarter: 2019Q1

REPORT INFORMATION
  Report Type: Spontaneous
  Country: JP (occurrence: JP)
  Receive Date: 20190208
  Receipt Date: 20190208
  Transmission Date: 20190417
  Serious: Yes (Death, Other)
  Sender: FDA-Public Use
  Company Number: JP-BRISTOL-MYERS SQUIBB COMPANY-BMS-2019-011443

PATIENT
  Age: 91 Year
  Sex: Female

DRUGS (1)
  1. OPDIVO [Suspect]
     Active Substance: NIVOLUMAB
     Indication: PRODUCT USED FOR UNKNOWN INDICATION
     Dosage: 3 MG/KG
     Route: 041

REACTIONS (7)
  - Hypothyroidism [Fatal]
  - Colitis [Fatal]
  - Diarrhoea [Fatal]
  - Blood sodium decreased [Fatal]
  - Pyrexia [Fatal]
  - Altered state of consciousness [Fatal]
  - Vomiting [Fatal]
